FAERS Safety Report 12330098 (Version 1)
Quarter: 2016Q2

REPORT INFORMATION
  Report Type: Spontaneous
  Country: FR (occurrence: FR)
  Receive Date: 20160504
  Receipt Date: 20160504
  Transmission Date: 20160815
  Serious: Yes (Life-Threatening)
  Sender: FDA-Public Use
  Company Number: FR-ROCHE-1750713

PATIENT
  Age: 54 Year
  Sex: Male

DRUGS (6)
  1. QUESTRAN [Concomitant]
     Active Substance: CHOLESTYRAMINE
  2. CEFTRIAXONE. [Suspect]
     Active Substance: CEFTRIAXONE
     Indication: ASPERGILLUS INFECTION
     Route: 042
     Dates: start: 20160227, end: 20160229
  3. PANTOPRAZOLE [Concomitant]
     Active Substance: PANTOPRAZOLE SODIUM
  4. TAMIFLU [Suspect]
     Active Substance: OSELTAMIVIR PHOSPHATE
     Indication: INFLUENZA
     Route: 048
     Dates: start: 20160227, end: 20160301
  5. VFEND [Suspect]
     Active Substance: VORICONAZOLE
     Indication: ASPERGILLUS INFECTION
     Route: 042
     Dates: start: 20160227, end: 20160304
  6. CORTANCYL [Concomitant]
     Active Substance: PREDNISONE

REACTIONS (1)
  - Cholestasis [Recovered/Resolved]

NARRATIVE: CASE EVENT DATE: 20160228
